FAERS Safety Report 6303894-8 (Version None)
Quarter: 2009Q3

REPORT INFORMATION
  Report Type: 
  Country: None (occurrence: None)
  Receive Date: 20090807
  Receipt Date: 20090807
  Transmission Date: 20100115
  Serious: Yes (Disabling)
  Sender: FDA-Public Use
  Company Number: None

PATIENT
  Age: 79 Year
  Sex: Female
  Weight: 86.1834 kg

DRUGS (2)
  1. ZICAM NASAL GEL ZICAM LLC, PHOENIX, AZ 85016 [Suspect]
     Indication: NASOPHARYNGITIS
     Dosage: GEL IN EACH NOSTRIL, 2 TIMES A DAY, NASAL
     Route: 045
     Dates: start: 20090503, end: 20090507
  2. ZICAM NASAL GEL ZICAM LLC, PHOENIX, AZ 85016 [Suspect]
     Indication: PROPHYLAXIS
     Dosage: GEL IN EACH NOSTRIL, 2 TIMES A DAY, NASAL
     Route: 045
     Dates: start: 20090503, end: 20090507

REACTIONS (2)
  - AGEUSIA [None]
  - ANOSMIA [None]
